FAERS Safety Report 13610817 (Version 2)
Quarter: 2017Q2

REPORT INFORMATION
  Report Type: Spontaneous
  Country: US (occurrence: US)
  Receive Date: 20170605
  Receipt Date: 20170614
  Transmission Date: 20170830
  Serious: Yes (Other)
  Sender: FDA-Public Use
  Company Number: US-AUROBINDO-AUR-APL-2017-34888

PATIENT
  Age: 80 Year
  Sex: Male

DRUGS (1)
  1. PREDNISONE. [Suspect]
     Active Substance: PREDNISONE
     Indication: COLITIS
     Dosage: 10 MG, DAILY
     Route: 048

REACTIONS (4)
  - Weight decreased [Recovered/Resolved]
  - Septic embolus [Recovered/Resolved]
  - Nocardiosis [Recovered/Resolved]
  - Dysarthria [Recovered/Resolved]
